FAERS Safety Report 21724207 (Version 1)
Quarter: 2022Q4

REPORT INFORMATION
  Report Type: Report from Study
  Country: CN (occurrence: CN)
  Receive Date: 20221213
  Receipt Date: 20221213
  Transmission Date: 20230113
  Serious: Yes (Hospitalization)
  Sender: FDA-Public Use
  Company Number: CN-JNJFOC-20221211119

PATIENT
  Age: 79 Year
  Sex: Female

DRUGS (1)
  1. AMIVANTAMAB [Suspect]
     Active Substance: AMIVANTAMAB
     Indication: Non-small cell lung cancer
     Route: 042
     Dates: start: 20210624, end: 20221123

REACTIONS (1)
  - Cerebrovascular accident [Not Recovered/Not Resolved]

NARRATIVE: CASE EVENT DATE: 20221204
